FAERS Safety Report 6368753-3 (Version None)
Quarter: 2009Q3

REPORT INFORMATION
  Report Type: 
  Country: None (occurrence: None)
  Receive Date: 20090916
  Receipt Date: 20090901
  Transmission Date: 20100115
  Serious: Yes (Other)
  Sender: FDA-Public Use
  Company Number: 2009AL005728

PATIENT

DRUGS (15)
  1. DIGOXIN [Suspect]
     Dosage: PO; 0.125 MG. DAILY
     Route: 048
     Dates: start: 20080122
  2. ALTACE [Concomitant]
  3. COUMADIN [Concomitant]
  4. LASIX [Concomitant]
  5. TOPROL-XL [Concomitant]
  6. ALDACTONE [Concomitant]
  7. RAMIPRIL [Concomitant]
  8. BETAMETHASONE [Concomitant]
  9. HYDROCODONE BITARTRATE AND ACETAMINOPHEN [Concomitant]
  10. ZYMAR [Concomitant]
  11. LUMIGAN [Concomitant]
  12. COREG [Concomitant]
  13. ACULAR [Concomitant]
  14. CEPHALEXIN [Concomitant]
  15. HYDRALAZINE [Concomitant]

REACTIONS (8)
  - ANXIETY [None]
  - DYSPNOEA [None]
  - FLUID OVERLOAD [None]
  - HEART RATE IRREGULAR [None]
  - INTERNATIONAL NORMALISED RATIO INCREASED [None]
  - PROTHROMBIN TIME PROLONGED [None]
  - TREATMENT NONCOMPLIANCE [None]
  - WEIGHT INCREASED [None]
